FAERS Safety Report 8561782-0 (Version None)
Quarter: 2012Q3

REPORT INFORMATION
  Report Type: 
  Country: None (occurrence: None)
  Receive Date: 20120802
  Receipt Date: 20120723
  Transmission Date: 20120928
  Serious: Yes (Other)
  Sender: FDA-Public Use
  Company Number: US-009507513-1207USA010200

PATIENT

DRUGS (3)
  1. JANUMET [Suspect]
     Dosage: UNK, UNKNOWN
     Route: 064
  2. ASPIRIN [Suspect]
     Dosage: 100 MG, QD
     Route: 064
  3. LANTUS [Suspect]
     Dosage: 30 IU, UNK
     Route: 064

REACTIONS (2)
  - ABORTION SPONTANEOUS [None]
  - MATERNAL EXPOSURE DURING PREGNANCY [None]
